FAERS Safety Report 20878406 (Version 2)
Quarter: 2022Q2

REPORT INFORMATION
  Report Type: Spontaneous
  Country: US (occurrence: US)
  Receive Date: 20220526
  Receipt Date: 20220602
  Transmission Date: 20220721
  Serious: No
  Sender: FDA-Public Use
  Company Number: US-PFIZER INC-202200757281

PATIENT
  Age: 62 Year
  Sex: Female
  Weight: 68.04 kg

DRUGS (1)
  1. EXEMESTANE [Suspect]
     Active Substance: EXEMESTANE
     Indication: Neoplasm malignant
     Dosage: 25 MG
     Route: 048
     Dates: start: 2012

REACTIONS (5)
  - Illness [Unknown]
  - Pain [Recovered/Resolved]
  - Insomnia [Recovered/Resolved]
  - Spinal disorder [Unknown]
  - Discomfort [Recovered/Resolved]
